FAERS Safety Report 12783522 (Version 1)
Quarter: 2016Q3

REPORT INFORMATION
  Report Type: Report from Study
  Country: CN (occurrence: CN)
  Receive Date: 20160927
  Receipt Date: 20160927
  Transmission Date: 20161109
  Serious: Yes (Other)
  Sender: FDA-Public Use
  Company Number: CN-CIPLA LTD.-2016US18591

PATIENT

DRUGS (1)
  1. TENOFOVIR [Suspect]
     Active Substance: TENOFOVIR
     Indication: PROPHYLAXIS
     Dosage: 300 MG, DAILY
     Route: 048

REACTIONS (5)
  - Exposure during pregnancy [Unknown]
  - Pruritus [Recovered/Resolved]
  - Stillbirth [Unknown]
  - Jaundice [Recovered/Resolved]
  - Abdominal pain lower [Unknown]
